FAERS Safety Report 6131269-3 (Version None)
Quarter: 2009Q1

REPORT INFORMATION
  Report Type: 
  Country: None (occurrence: None)
  Receive Date: 20090325
  Receipt Date: 20080313
  Transmission Date: 20090719
  Serious: No
  Sender: FDA-Public Use
  Company Number: US-BRISTOL-MYERS SQUIBB COMPANY-14078950

PATIENT
  Age: 74 Year
  Sex: Male

DRUGS (1)
  1. ERBITUX [Suspect]
     Indication: COLON CANCER
     Dosage: INITIAL DOSE WAS ERBITUX 400MG/M2, FOLLOWED BY DOSES OF 250MG/M2
     Route: 042
     Dates: start: 20060814

REACTIONS (1)
  - HAIR GROWTH ABNORMAL [None]
